FAERS Safety Report 10576090 (Version 1)
Quarter: 2014Q4

REPORT INFORMATION
  Report Type: Spontaneous
  Country: US (occurrence: None)
  Receive Date: 20141110
  Receipt Date: 20141110
  Transmission Date: 20150529
  Serious: Yes (Life-Threatening, Hospitalization)
  Sender: FDA-Public Use
  Company Number: None

PATIENT
  Age: 08 Year
  Sex: Female
  Weight: 28.1 kg

DRUGS (1)
  1. TYLENOL [Suspect]
     Active Substance: ACETAMINOPHEN

REACTIONS (13)
  - Pyrexia [None]
  - Accidental overdose [None]
  - Decreased appetite [None]
  - Acute hepatic failure [None]
  - Fatigue [None]
  - Coagulopathy [None]
  - Vomiting [None]
  - Abdominal pain upper [None]
  - International normalised ratio increased [None]
  - Diarrhoea [None]
  - Blood creatinine increased [None]
  - Toxicity to various agents [None]
  - Asthenia [None]

NARRATIVE: CASE EVENT DATE: 20141016
